FAERS Safety Report 21253506 (Version 13)
Quarter: 2025Q1

REPORT INFORMATION
  Report Type: Spontaneous
  Country: US (occurrence: US)
  Receive Date: 20220825
  Receipt Date: 20250220
  Transmission Date: 20250409
  Serious: Yes (Other)
  Sender: PFIZER
  Company Number: US-PFIZER INC-PV202200049715

PATIENT
  Age: 72 Year
  Sex: Female

DRUGS (3)
  1. IBRANCE [Suspect]
     Active Substance: PALBOCICLIB
  2. IBRANCE [Suspect]
     Active Substance: PALBOCICLIB
     Dates: start: 20220903
  3. IBRANCE [Suspect]
     Active Substance: PALBOCICLIB
     Dosage: 75 MG, 1X/DAY

REACTIONS (8)
  - Pulmonary oedema [Unknown]
  - Pleuritic pain [Unknown]
  - Fatigue [Recovered/Resolved]
  - Somnolence [Recovered/Resolved]
  - Pain [Unknown]
  - COVID-19 [Unknown]
  - Night sweats [Recovered/Resolved]
  - White blood cell count decreased [Unknown]

NARRATIVE: CASE EVENT DATE: 20220901
